FAERS Safety Report 8905192 (Version 1)
Quarter: 2012Q4

REPORT INFORMATION
  Report Type: 
  Country: GB (occurrence: GB)
  Receive Date: 20121112
  Receipt Date: 20121112
  Transmission Date: 20130627
  Serious: Yes (Disabling)
  Sender: FDA-Public Use
  Company Number: PHFR2012GB005877

PATIENT
  Age: 51 Year
  Sex: Male
  Weight: 110.67 kg

DRUGS (3)
  1. CARBAMAZEPINE [Suspect]
     Indication: CONVULSION
     Dosage: 1200 mg, Daily
     Route: 048
     Dates: start: 20090309
  2. CARBAMAZEPINE [Suspect]
     Dosage: 400 mg, Daily
     Route: 048
  3. ESCITALOPRAM [Concomitant]

REACTIONS (3)
  - Decreased activity [Not Recovered/Not Resolved]
  - Apathy [Unknown]
  - Somnolence [Unknown]
